FAERS Safety Report 7937898-6 (Version None)
Quarter: 2011Q4

REPORT INFORMATION
  Report Type: 
  Country: None (occurrence: None)
  Receive Date: 20111123
  Receipt Date: 20111110
  Transmission Date: 20120403
  Serious: Yes (Hospitalization)
  Sender: FDA-Public Use
  Company Number: IT-CELGENEUS-083-21880-09090190

PATIENT
  Sex: Female

DRUGS (15)
  1. REVLIMID [Suspect]
     Route: 048
     Dates: start: 20090803
  2. DIFLUCAN [Concomitant]
     Dosage: 200 MICROGRAM
     Route: 065
  3. COTRIM [Concomitant]
     Indication: PROPHYLAXIS
     Dosage: 1600 MILLIGRAM
     Route: 065
     Dates: start: 20090701
  4. EPOETIN [Concomitant]
     Indication: MULTIPLE MYELOMA
     Route: 065
  5. VELCADE [Concomitant]
     Indication: MULTIPLE MYELOMA
     Dosage: 1.3MG/MQ
     Route: 065
  6. DEXAMETHASONE [Concomitant]
     Dosage: 5.3333 MILLIGRAM
     Route: 065
     Dates: start: 20090803
  7. FLUCONAZOLE [Concomitant]
     Dosage: 200 MILLIGRAM
     Route: 065
  8. HEPARIN LMW [Concomitant]
     Route: 065
  9. CLARITHROMYCIN [Concomitant]
     Route: 065
     Dates: start: 20090914
  10. REVLIMID [Suspect]
     Indication: MULTIPLE MYELOMA
     Dosage: 25 MILLIGRAM
     Route: 048
     Dates: start: 20090701, end: 20090714
  11. OMEPRAZOLE [Concomitant]
     Dosage: 20 MICROGRAM
     Route: 065
  12. DOXORUBICIN HYDROCHLORIDE [Concomitant]
     Indication: MULTIPLE MYELOMA
     Dosage: 30MG/MQ
     Route: 065
  13. BACTRIM [Concomitant]
     Dosage: 800 MICROGRAM
     Route: 065
  14. DEXAMETHASONE [Concomitant]
     Indication: MULTIPLE MYELOMA
     Dosage: 5.3333 MILLIGRAM
     Route: 065
     Dates: start: 20090701
  15. ENOXAPARIN [Concomitant]
     Dosage: 5000 IU (INTERNATIONAL UNIT)
     Route: 065

REACTIONS (3)
  - PYREXIA [None]
  - TRANSAMINASES INCREASED [None]
  - SEPSIS [None]
